FAERS Safety Report 7423256-X (Version None)
Quarter: 2011Q2

REPORT INFORMATION
  Report Type: 
  Country: None (occurrence: None)
  Receive Date: 20110419
  Receipt Date: 20110414
  Transmission Date: 20111010
  Serious: Yes (Other)
  Sender: FDA-Public Use
  Company Number: US-PFIZER INC-2011077504

PATIENT
  Sex: Female
  Weight: 68.027 kg

DRUGS (3)
  1. CORDARONE [Suspect]
     Indication: TACHYCARDIA
     Dosage: 800 MG, 1X/DAY
     Route: 048
  2. CORDARONE [Suspect]
     Indication: ARRHYTHMIA
     Dosage: 200 MG, 1X/DAY
     Route: 048
  3. CORDARONE [Suspect]
     Dosage: 200 MG DAILY
     Route: 048

REACTIONS (5)
  - OXYGEN SATURATION DECREASED [None]
  - VOMITING [None]
  - DYSGEUSIA [None]
  - TREMOR [None]
  - NAUSEA [None]
